FAERS Safety Report 20705561 (Version 3)
Quarter: 2022Q3

REPORT INFORMATION
  Report Type: Spontaneous
  Country: US (occurrence: US)
  Receive Date: 20220413
  Receipt Date: 20220705
  Transmission Date: 20221026
  Serious: Yes (Hospitalization, Other)
  Sender: FDA-Public Use
  Company Number: US-SCIEGENP-2022SCLIT00305

PATIENT
  Age: 63 Year
  Sex: Female

DRUGS (3)
  1. ROSUVASTATIN [Suspect]
     Active Substance: ROSUVASTATIN
     Indication: Hyperlipidaemia
     Dosage: FIVE WEEKS PRIOR TO PRESENTATION, RECIEVED 10-DAY COURSE
     Route: 065
  2. ROSUVASTATIN [Suspect]
     Active Substance: ROSUVASTATIN
     Indication: Prophylaxis
     Dosage: RESTARTED
     Route: 065
  3. CLINDAMYCIN [Concomitant]
     Active Substance: CLINDAMYCIN
     Dosage: FIVE WEEKS PRIOR TO PRESENTATION, RECIEVED 10-DAY COURSE
     Route: 065

REACTIONS (1)
  - Drug reaction with eosinophilia and systemic symptoms [Recovered/Resolved]
